FAERS Safety Report 4866457-7 (Version None)
Quarter: 2005Q4

REPORT INFORMATION
  Report Type: 
  Country: None (occurrence: None)
  Receive Date: 20051227
  Receipt Date: 20050829
  Transmission Date: 20060501
  Serious: Yes (Hospitalization)
  Sender: FDA-Public Use
  Company Number: 2005AP04610

PATIENT
  Age: 21644 Day
  Sex: Male
  Weight: 52 kg

DRUGS (2)
  1. IRESSA [Suspect]
     Indication: SQUAMOUS CELL CARCINOMA
     Route: 048
     Dates: start: 20041129, end: 20050826
  2. RADIOTHERAPY [Suspect]
     Dosage: 70 GY
     Dates: start: 20041129, end: 20050118

REACTIONS (3)
  - ANAEMIA [None]
  - PLATELET COUNT DECREASED [None]
  - WHITE BLOOD CELL COUNT DECREASED [None]
